FAERS Safety Report 8708854 (Version 2)
Quarter: 2012Q4

REPORT INFORMATION
  Report Type: 
  Country: AR (occurrence: AR)
  Receive Date: 20120806
  Receipt Date: 20120828
  Transmission Date: 20130627
  Serious: Yes (Hospitalization)
  Sender: FDA-Public Use
  Company Number: AR-AMGEN-ARGSP2012047409

PATIENT
  Age: 73 Year
  Sex: Female

DRUGS (3)
  1. ENBREL [Suspect]
     Indication: RHEUMATOID ARTHRITIS
     Dosage: 25 mg, 2x/week
     Route: 058
     Dates: start: 201202, end: 201204
  2. DELTISON [Concomitant]
     Dosage: UNK
  3. KETOROLAC [Concomitant]
     Dosage: UNK

REACTIONS (6)
  - Oral mucosal blistering [Recovered/Resolved]
  - Abdominal discomfort [Unknown]
  - Localised infection [Recovered/Resolved]
  - Gastric infection [Unknown]
  - Oral infection [Unknown]
  - Vaginal infection [Unknown]
